FAERS Safety Report 13569169 (Version 1)
Quarter: 2017Q2

REPORT INFORMATION
  Report Type: Spontaneous
  Country: HR (occurrence: HR)
  Receive Date: 20170522
  Receipt Date: 20170522
  Transmission Date: 20170830
  Serious: Yes (Other)
  Sender: FDA-Public Use
  Company Number: HR-TEVA-768944ISR

PATIENT
  Age: 60 Year
  Sex: Female

DRUGS (2)
  1. PRAXITEN [Suspect]
     Active Substance: OXAZEPAM
     Route: 048
  2. VAIRA [Suspect]
     Active Substance: OLANZAPINE
     Route: 048

REACTIONS (2)
  - Intentional overdose [Unknown]
  - Suicide attempt [Unknown]

NARRATIVE: CASE EVENT DATE: 20170310
